FAERS Safety Report 6528197-8 (Version None)
Quarter: 2010Q1

REPORT INFORMATION
  Report Type: 
  Country: None (occurrence: None)
  Receive Date: 20100105
  Receipt Date: 20100105
  Transmission Date: 20100710
  Serious: Yes (Other)
  Sender: FDA-Public Use
  Company Number: None

PATIENT
  Age: 47 Year
  Sex: Female
  Weight: 120.2032 kg

DRUGS (1)
  1. AMBIEN [Suspect]
     Indication: INSOMNIA
     Dosage: 6.25MG RECENTLY 12.5MG PRIOR 1 X PER EVENING PO
     Route: 048
     Dates: start: 20090807, end: 20091217

REACTIONS (3)
  - ARTHRALGIA [None]
  - OSTEOMALACIA [None]
  - VITAMIN D DEFICIENCY [None]
